FAERS Safety Report 21963103 (Version 1)
Quarter: 2023Q1

REPORT INFORMATION
  Report Type: Report from Study
  Country: US (occurrence: US)
  Receive Date: 20230207
  Receipt Date: 20230207
  Transmission Date: 20230417
  Serious: No
  Sender: FDA-Public Use
  Company Number: US-AMRYT PHARMACEUTICALS DAC-AEGR006126

PATIENT
  Age: 58 Year
  Sex: Male

DRUGS (18)
  1. METRELEPTIN [Suspect]
     Active Substance: METRELEPTIN
     Indication: Familial partial lipodystrophy
     Dosage: 2.5 MILLIGRAM, QD
     Route: 058
     Dates: start: 20180716, end: 20200227
  2. METRELEPTIN [Suspect]
     Active Substance: METRELEPTIN
     Dosage: 3.75 MILLIGRAM, QD
     Route: 057
     Dates: start: 20200228
  3. VITAMIN D3 [Concomitant]
     Active Substance: CHOLECALCIFEROL
     Indication: Supplementation therapy
     Dosage: 4000 IU, QD
     Route: 048
     Dates: start: 20180102
  4. FENOFIBRATE [Concomitant]
     Active Substance: FENOFIBRATE
     Indication: Hypertriglyceridaemia
     Dosage: 145 MILLIGRAM, QD
     Route: 048
     Dates: start: 2014, end: 20190619
  5. FENOFIBRATE [Concomitant]
     Active Substance: FENOFIBRATE
     Dosage: 160 MILLIGRAM, QD
     Route: 048
     Dates: start: 20210901
  6. LEVOTHYROXINE [Concomitant]
     Active Substance: LEVOTHYROXINE
     Indication: Hypothyroidism
     Dosage: 250 UG, QD
     Route: 048
     Dates: start: 20180615, end: 201810
  7. LEVOTHYROXINE [Concomitant]
     Active Substance: LEVOTHYROXINE
     Dosage: 300 UG, QD
     Route: 048
     Dates: start: 201810
  8. INSULIN LISPRO [Concomitant]
     Active Substance: INSULIN LISPRO
     Indication: Diabetes mellitus
     Dosage: 80 INTERNATIONAL UNIT, BID
     Route: 058
     Dates: start: 20190104, end: 20191031
  9. INSULIN LISPRO [Concomitant]
     Active Substance: INSULIN LISPRO
     Dosage: 85 INTERNATIONAL UNIT, BID
     Route: 058
     Dates: start: 20191101, end: 20220506
  10. INSULIN LISPRO [Concomitant]
     Active Substance: INSULIN LISPRO
     Dosage: 65 INTERNATIONAL UNIT, BID
     Route: 058
     Dates: start: 20220506
  11. PREGABALIN [Concomitant]
     Active Substance: PREGABALIN
     Indication: Neuropathy peripheral
     Dosage: 600 MILLIGRAM, BID
     Route: 048
     Dates: start: 201607, end: 20200227
  12. PREGABALIN [Concomitant]
     Active Substance: PREGABALIN
     Dosage: 150 MILLIGRAM, BID
     Route: 048
     Dates: start: 20180629
  13. INSULIN LISPRO [Concomitant]
     Active Substance: INSULIN LISPRO
     Indication: Diabetes mellitus
     Dosage: 12 IU INTERNATIONAL UNIT(S), TID WITH MEALS
     Route: 058
     Dates: start: 20191115
  14. NOVOLOG [Concomitant]
     Active Substance: INSULIN ASPART
     Indication: Hyperglycaemia
     Dosage: 15 INTERNATIONAL UNIT, SINGLE
     Route: 058
     Dates: start: 20201221, end: 20201221
  15. NOVOLOG [Concomitant]
     Active Substance: INSULIN ASPART
     Indication: Diabetes mellitus
     Dosage: 90 INTERNATIONAL UNIT, PRN
     Route: 058
     Dates: start: 20220112
  16. CASIRIVIMAB\IMDEVIMAB [Concomitant]
     Active Substance: CASIRIVIMAB\IMDEVIMAB
     Indication: COVID-19
     Dosage: 600 MILLIGRAM, SINGLE
     Route: 042
     Dates: start: 20211019, end: 20211019
  17. CASIRIVIMAB\IMDEVIMAB [Concomitant]
     Active Substance: CASIRIVIMAB\IMDEVIMAB
     Dosage: 600 MILLIGRAM, SINGLE
     Route: 042
     Dates: start: 20211019
  18. SILDENAFIL [Concomitant]
     Active Substance: SILDENAFIL
     Indication: Erectile dysfunction
     Dosage: 1 TABLET, PRN
     Route: 048
     Dates: start: 20211103

REACTIONS (2)
  - Thermal burn [Recovered/Resolved]
  - Off label use [Unknown]

NARRATIVE: CASE EVENT DATE: 20220308
